FAERS Safety Report 22335519 (Version 1)
Quarter: 2023Q2

REPORT INFORMATION
  Report Type: Spontaneous
  Country: ID (occurrence: ID)
  Receive Date: 20230518
  Receipt Date: 20230518
  Transmission Date: 20230722
  Serious: Yes (Hospitalization, Other)
  Sender: FDA-Public Use
  Company Number: ID-MACLEODS PHARMACEUTICALS US LTD-MAC2023041317

PATIENT

DRUGS (6)
  1. LEVOTHYROXINE [Suspect]
     Active Substance: LEVOTHYROXINE
     Indication: Hypothyroidism
     Dosage: 50 MICROGRAM, QD
     Route: 065
  2. LEVOTHYROXINE [Suspect]
     Active Substance: LEVOTHYROXINE
     Dosage: 100 MICROGRAM, QD(SOMETIMES INCREASED LEVOTHYROXINE DOSE TO 100 ?G WHENEVER SHE FELT WEAK WITH A LOW
     Route: 065
  3. LEVOTHYROXINE [Suspect]
     Active Substance: LEVOTHYROXINE
     Dosage: 150 MICROGRAM, QD(SELF-INCREASED THE DOSE OF LEVOTHYROXINE TO 150 ?G DAILY)
     Route: 065
  4. AMLODIPINE [Concomitant]
     Active Substance: AMLODIPINE BESYLATE
     Indication: Hypertension
     Dosage: 10 MILLIGRAM, QD
     Route: 065
  5. AMLODIPINE [Concomitant]
     Active Substance: AMLODIPINE BESYLATE
     Dosage: 5 MILLIGRAM, QD
     Route: 065
  6. SIMVASTATIN [Concomitant]
     Active Substance: SIMVASTATIN
     Indication: Dyslipidaemia
     Dosage: 20 MILLIGRAM, QD
     Route: 065

REACTIONS (3)
  - Hyperthyroidism [Recovered/Resolved]
  - Atrial fibrillation [Recovered/Resolved]
  - Intentional product use issue [Recovered/Resolved]
